FAERS Safety Report 5656553-9 (Version None)
Quarter: 2008Q1

REPORT INFORMATION
  Report Type: 
  Country: None (occurrence: None)
  Receive Date: 20080310
  Receipt Date: 20080228
  Transmission Date: 20080703
  Serious: Yes (Life-Threatening, Hospitalization, Other)
  Sender: FDA-Public Use
  Company Number: JP-BRISTOL-MYERS SQUIBB COMPANY-14040786

PATIENT
  Age: 71 Year
  Sex: Male

DRUGS (6)
  1. GATIFLOXACIN [Suspect]
     Indication: PNEUMONIA
     Route: 048
     Dates: start: 20071230, end: 20080102
  2. UNASYN [Suspect]
     Indication: PNEUMONIA
  3. GAMOFA [Concomitant]
     Route: 048
     Dates: start: 20071130
  4. LOXONIN [Concomitant]
     Route: 048
     Dates: start: 20071130
  5. CIBENOL [Concomitant]
     Route: 048
     Dates: start: 20071130
  6. SELBEX [Concomitant]
     Route: 048
     Dates: start: 20071130

REACTIONS (2)
  - DEPRESSED LEVEL OF CONSCIOUSNESS [None]
  - HYPOGLYCAEMIA [None]
